FAERS Safety Report 6773094-6 (Version None)
Quarter: 2010Q2

REPORT INFORMATION
  Report Type: 
  Country: None (occurrence: None)
  Receive Date: 20100616
  Receipt Date: 20100603
  Transmission Date: 20101027
  Serious: Yes (Other)
  Sender: FDA-Public Use
  Company Number: JP-PFIZER INC-2010052314

PATIENT
  Age: 29 Year
  Sex: Female

DRUGS (3)
  1. XALATAN [Suspect]
     Indication: GLAUCOMA
     Dosage: UNK
     Route: 031
     Dates: start: 20030101, end: 20070206
  2. XALATAN [Suspect]
     Dosage: UNK
     Route: 031
     Dates: start: 20080319, end: 20100201
  3. PREDONINE [Concomitant]
     Indication: DERMATOMYOSITIS
     Dosage: 8 TO 10 MG/DAY
     Route: 048

REACTIONS (3)
  - ABDOMINAL PAIN UPPER [None]
  - ABORTION SPONTANEOUS [None]
  - INSOMNIA [None]
